FAERS Safety Report 7720391-3 (Version None)
Quarter: 2011Q3

REPORT INFORMATION
  Report Type: 
  Country: None (occurrence: None)
  Receive Date: 20110825
  Receipt Date: 20110812
  Transmission Date: 20111222
  Serious: Yes (Hospitalization)
  Sender: FDA-Public Use
  Company Number: CIP11000566

PATIENT
  Age: 63 Year
  Sex: Female
  Weight: 48.5 kg

DRUGS (16)
  1. LEVAQUIN [Concomitant]
  2. ACTONEL [Suspect]
     Dosage: 30 MG, ORAL
     Route: 048
     Dates: start: 20020530
  3. ACTONEL [Suspect]
     Dosage: 35 MG WEEKLY, ORAL
     Route: 048
     Dates: start: 20030221
  4. AMBIEN [Concomitant]
  5. ACTONEL [Suspect]
     Dosage: 5 MG DAILY, ORAL
     Route: 048
     Dates: start: 20010808
  6. PREMPRO [Concomitant]
  7. CLARITIN-D [Concomitant]
  8. CELEBREX [Concomitant]
  9. FOSAMAX [Suspect]
     Indication: OSTEOPENIA
     Dosage: 35 MG WEEKLY, ORAL
     Route: 048
     Dates: start: 20030415
  10. ACTONEL [Suspect]
     Dosage: 35 MG, 1/WEEK, ORAL
     Route: 048
     Dates: start: 20031107
  11. FLONASE [Concomitant]
  12. PROMETHAZINE - CODEINE (CODEINE PHOSPHATE, PROMETHAZINE HYDROCHLORIDE) [Concomitant]
  13. FOSAMAX [Suspect]
     Dosage: 70 MG WEEKLY, ORAL
     Route: 048
     Dates: start: 20051027, end: 20090221
  14. FOSAMAX PLUS D [Suspect]
     Dosage: 70 MG WEEKLY, ORAL
     Route: 048
     Dates: start: 20060421
  15. EVISTA [Concomitant]
  16. ZYRTEC [Concomitant]

REACTIONS (13)
  - FALL [None]
  - GROIN PAIN [None]
  - POST PROCEDURAL HAEMATOMA [None]
  - ECCHYMOSIS [None]
  - PATHOLOGICAL FRACTURE [None]
  - MUSCULAR WEAKNESS [None]
  - HAEMATOMA [None]
  - FEMUR FRACTURE [None]
  - FRACTURE DISPLACEMENT [None]
  - ARTHRALGIA [None]
  - PAIN IN EXTREMITY [None]
  - TRENDELENBURG'S SYMPTOM [None]
  - GAIT DISTURBANCE [None]
